FAERS Safety Report 25032172 (Version 1)
Quarter: 2025Q1

REPORT INFORMATION
  Report Type: Spontaneous
  Country: IN (occurrence: IN)
  Receive Date: 20250303
  Receipt Date: 20250303
  Transmission Date: 20250409
  Serious: Yes (Hospitalization)
  Sender: MYLAN
  Company Number: IN-MYLANLABS-2025M1017133

PATIENT
  Age: 39 Year
  Sex: Female

DRUGS (8)
  1. VANCOMYCIN [Suspect]
     Active Substance: VANCOMYCIN
     Indication: Visual impairment
  2. VANCOMYCIN [Suspect]
     Active Substance: VANCOMYCIN
     Indication: Cutibacterium acnes infection
  3. VANCOMYCIN [Suspect]
     Active Substance: VANCOMYCIN
     Indication: Eye infection bacterial
  4. CEFAZOLIN [Suspect]
     Active Substance: CEFAZOLIN
     Indication: Visual impairment
     Dosage: 1 GRAM, BID
  5. CEFAZOLIN [Suspect]
     Active Substance: CEFAZOLIN
     Indication: Cutibacterium acnes infection
  6. CEFAZOLIN [Suspect]
     Active Substance: CEFAZOLIN
     Indication: Eye infection bacterial
  7. PREDNISOLONE [Concomitant]
     Active Substance: PREDNISOLONE
     Indication: Eye pain
     Dosage: UNK UNK, QID
  8. HOMATROPINE [Concomitant]
     Active Substance: HOMATROPINE HYDROBROMIDE
     Indication: Eye pain
     Dosage: UNK UNK, BID

REACTIONS (2)
  - Drug ineffective [Unknown]
  - Off label use [Unknown]
